FAERS Safety Report 9464948 (Version 1)
Quarter: 2013Q3

REPORT INFORMATION
  Report Type: Spontaneous
  Country: US (occurrence: US)
  Receive Date: 20130819
  Receipt Date: 20130819
  Transmission Date: 20140515
  Serious: Yes (Hospitalization)
  Sender: FDA-Public Use
  Company Number: US-ABBOTT-13P-163-1132521-00

PATIENT
  Age: 65 Year
  Sex: Female
  Weight: 91.71 kg

DRUGS (7)
  1. HUMIRA [Suspect]
     Indication: RHEUMATOID ARTHRITIS
     Dates: start: 201303, end: 20130530
  2. LIPTOR [Concomitant]
     Indication: BLOOD CHOLESTEROL INCREASED
  3. ASPIRIN [Concomitant]
     Indication: FAMILIAL RISK FACTOR
     Dosage: 81 MG DAILY
  4. GLUCOTROL [Concomitant]
     Indication: DIABETES MELLITUS
  5. METFORMIN [Concomitant]
     Indication: DIABETES MELLITUS
  6. MAXZIDE [Concomitant]
     Indication: HYPERTENSION
  7. MICARDIS [Concomitant]
     Indication: HYPERTENSION

REACTIONS (7)
  - Pain [Recovered/Resolved]
  - Abdominal pain upper [Recovered/Resolved]
  - Diarrhoea [Recovered/Resolved]
  - Pyrexia [Recovered/Resolved]
  - Tremor [Recovered/Resolved]
  - Urosepsis [Recovered/Resolved]
  - Sinusitis [Recovered/Resolved]
